FAERS Safety Report 11601439 (Version 1)
Quarter: 2015Q4

REPORT INFORMATION
  Report Type: Spontaneous
  Country: US (occurrence: US)
  Receive Date: 20151006
  Receipt Date: 20151006
  Transmission Date: 20160304
  Serious: No
  Sender: FDA-Public Use
  Company Number: US-AMGEN-USASP2015002090

PATIENT
  Age: 68 Year
  Sex: Female
  Weight: 60.77 kg

DRUGS (1)
  1. PROLIA [Suspect]
     Active Substance: DENOSUMAB
     Indication: OSTEOPOROSIS POSTMENOPAUSAL
     Dosage: UNK UNK, Q6MO
     Route: 058
     Dates: start: 20130522

REACTIONS (3)
  - Musculoskeletal pain [Unknown]
  - Arthralgia [Recovered/Resolved]
  - Oral disorder [Unknown]

NARRATIVE: CASE EVENT DATE: 201405
